FAERS Safety Report 23669435 (Version 1)
Quarter: 2024Q1

REPORT INFORMATION
  Report Type: Spontaneous
  Country: US (occurrence: US)
  Receive Date: 20240325
  Receipt Date: 20240325
  Transmission Date: 20240410
  Serious: No
  Sender: FDA-Public Use
  Company Number: US-PERRIGO-24US002024

PATIENT
  Age: 88 Year
  Sex: Male
  Weight: 73.469 kg

DRUGS (2)
  1. NASONEX [Suspect]
     Active Substance: MOMETASONE FUROATE
     Indication: Rhinorrhoea
     Dosage: 100 MCG IN EACH NOSTRIL, QD
     Route: 045
     Dates: start: 20240217, end: 20240218
  2. NASONEX [Suspect]
     Active Substance: MOMETASONE FUROATE
     Dosage: 100 MCG IN EACH NOSTRIL, SINGLE
     Route: 045
     Dates: start: 20240223, end: 20240223

REACTIONS (2)
  - Diarrhoea [Recovered/Resolved]
  - Drug ineffective [Unknown]

NARRATIVE: CASE EVENT DATE: 20240217
